FAERS Safety Report 4383734-7 (Version None)
Quarter: 2004Q2

REPORT INFORMATION
  Report Type: 
  Country: None (occurrence: None)
  Receive Date: 20040608
  Receipt Date: 20030801
  Transmission Date: 20050107
  Serious: Yes (Other)
  Sender: FDA-Public Use
  Company Number: 200312658BCC

PATIENT
  Age: 73 Year
  Sex: Female
  Weight: 72.5755 kg

DRUGS (5)
  1. ALEVE (CAPLET) [Suspect]
     Indication: OSTEOPOROSIS
     Dosage: 220 MG, QD, ORAL
     Route: 048
     Dates: start: 19980701, end: 20030725
  2. ALEVE (CAPLET) [Suspect]
     Indication: PAIN
     Dosage: 220 MG, QD, ORAL
     Route: 048
     Dates: start: 19980701, end: 20030725
  3. SYNTHROID [Concomitant]
  4. PHENOBARBITAL TAB [Concomitant]
  5. ERGOTAMINE TARTRATE AND CAFFEINE [Concomitant]

REACTIONS (1)
  - HAEMATEMESIS [None]
